FAERS Safety Report 9307685 (Version 2)
Quarter: 2013Q3

REPORT INFORMATION
  Report Type: Spontaneous
  Country: US (occurrence: US)
  Receive Date: 20130524
  Receipt Date: 20130701
  Transmission Date: 20140515
  Serious: Yes (Death)
  Sender: FDA-Public Use
  Company Number: US-ELI_LILLY_AND_COMPANY-US201305006999

PATIENT
  Age: 74 Year
  Sex: Male

DRUGS (1)
  1. GEMCITABINE HYDROCHLORIDE [Suspect]
     Indication: GASTROOESOPHAGEAL CANCER
     Dosage: 10 MG/M2, OTHER
     Route: 042

REACTIONS (1)
  - Sudden death [Fatal]
